FAERS Safety Report 6823438-1 (Version None)
Quarter: 2010Q3

REPORT INFORMATION
  Report Type: 
  Country: None (occurrence: None)
  Receive Date: 20100702
  Receipt Date: 20100622
  Transmission Date: 20110219
  Serious: Yes (Other)
  Sender: FDA-Public Use
  Company Number: 7007625

PATIENT
  Age: 47 Year
  Sex: Male

DRUGS (5)
  1. REBIF [Suspect]
     Indication: MULTIPLE SCLEROSIS
     Dosage: 44 MCG, 3 IN 1 WK; SUBCUTANEOUS; 44 MCG, 3 IN 1 D, SUBCUTANEOUS
     Route: 058
     Dates: start: 20090601, end: 20100101
  2. REBIF [Suspect]
     Indication: MULTIPLE SCLEROSIS
     Dosage: 44 MCG, 3 IN 1 WK; SUBCUTANEOUS; 44 MCG, 3 IN 1 D, SUBCUTANEOUS
     Route: 058
     Dates: start: 20100101
  3. DARVON [Concomitant]
  4. CYCLOBENZAPRINE [Concomitant]
  5. VICODIN [Concomitant]

REACTIONS (2)
  - ANGINA PECTORIS [None]
  - INJECTION SITE HAEMATOMA [None]
